FAERS Safety Report 9829768 (Version 5)
Quarter: 2014Q2

REPORT INFORMATION
  Report Type: Report from Study
  Country: AU (occurrence: AU)
  Receive Date: 20140120
  Receipt Date: 20140505
  Transmission Date: 20141212
  Serious: Yes (Hospitalization, Other)
  Sender: FDA-Public Use
  Company Number: AU-ROCHE-1334560

PATIENT
  Age: 76 Year
  Sex: Female
  Weight: 68 kg

DRUGS (1)
  1. ACTEMRA [Suspect]
     Indication: RHEUMATOID ARTHRITIS
     Route: 042
     Dates: start: 20100122

REACTIONS (4)
  - Fall [Unknown]
  - Hip arthroplasty [Unknown]
  - Furuncle [Recovered/Resolved]
  - Device dislocation [Recovered/Resolved]
